FAERS Safety Report 13401396 (Version 1)
Quarter: 2017Q2

REPORT INFORMATION
  Report Type: Spontaneous
  Country: US (occurrence: US)
  Receive Date: 20170404
  Receipt Date: 20170404
  Transmission Date: 20170830
  Serious: No
  Sender: FDA-Public Use
  Company Number: US-ELI_LILLY_AND_COMPANY-US201607006196

PATIENT
  Sex: Male

DRUGS (1)
  1. CYMBALTA [Suspect]
     Active Substance: DULOXETINE HYDROCHLORIDE
     Indication: DEPRESSION
     Dosage: UNK, UNKNOWN
     Route: 065
     Dates: end: 201305

REACTIONS (16)
  - Tremor [Unknown]
  - Insomnia [Unknown]
  - Cognitive disorder [Unknown]
  - Visual impairment [Unknown]
  - Fatigue [Unknown]
  - Confusional state [Unknown]
  - Intentional product misuse [Unknown]
  - Nausea [Unknown]
  - Dizziness [Unknown]
  - Headache [Unknown]
  - Sensory disturbance [Unknown]
  - Lethargy [Unknown]
  - Paraesthesia [Unknown]
  - Vertigo [Unknown]
  - Drug withdrawal syndrome [Unknown]
  - Irritability [Unknown]
